FAERS Safety Report 7435129-7 (Version None)
Quarter: 2011Q2

REPORT INFORMATION
  Report Type: 
  Country: None (occurrence: None)
  Receive Date: 20110425
  Receipt Date: 20110412
  Transmission Date: 20111010
  Serious: Yes (Other)
  Sender: FDA-Public Use
  Company Number: PHHY2011US30350

PATIENT
  Age: 50 Year
  Sex: Male

DRUGS (5)
  1. MYCOPHENOLIC ACID [Suspect]
     Indication: RENAL AND PANCREAS TRANSPLANT
  2. ALBENDAZOLE [Concomitant]
     Dosage: 400 MG, BID
  3. PROGRAF [Concomitant]
     Indication: RENAL AND PANCREAS TRANSPLANT
  4. IVERMECTIN [Concomitant]
     Dosage: 15 MG, UNK
  5. PREDNISONE [Concomitant]
     Indication: RENAL AND PANCREAS TRANSPLANT

REACTIONS (8)
  - DIARRHOEA [None]
  - VOMITING [None]
  - RASH [None]
  - ACUTE RESPIRATORY FAILURE [None]
  - NEUROTOXICITY [None]
  - STRONGYLOIDIASIS [None]
  - NAUSEA [None]
  - UNRESPONSIVE TO STIMULI [None]
